FAERS Safety Report 6030652-4 (Version None)
Quarter: 2009Q1

REPORT INFORMATION
  Report Type: 
  Country: None (occurrence: None)
  Receive Date: 20090107
  Receipt Date: 20081231
  Transmission Date: 20090719
  Serious: Yes (Hospitalization)
  Sender: FDA-Public Use
  Company Number: CA-ABBOTT-08P-028-0495443-00

PATIENT
  Sex: Male

DRUGS (2)
  1. HUMIRA [Suspect]
     Indication: PSORIASIS
     Route: 058
     Dates: start: 20080925, end: 20081009
  2. TOPICAL CREAM [Concomitant]
     Indication: PSORIASIS
     Route: 061

REACTIONS (5)
  - BRAIN CONTUSION [None]
  - CONCUSSION [None]
  - EXCORIATION [None]
  - ROAD TRAFFIC ACCIDENT [None]
  - SKIN NODULE [None]
